FAERS Safety Report 6119789-9 (Version None)
Quarter: 2009Q1

REPORT INFORMATION
  Report Type: 
  Country: None (occurrence: None)
  Receive Date: 20090316
  Receipt Date: 20090304
  Transmission Date: 20090719
  Serious: Yes (Hospitalization)
  Sender: FDA-Public Use
  Company Number: FR-PFIZER INC-2009180588

PATIENT

DRUGS (1)
  1. SUTENT [Suspect]
     Indication: RENAL CANCER

REACTIONS (2)
  - NEUROLOGICAL SYMPTOM [None]
  - PYREXIA [None]
